FAERS Safety Report 14189948 (Version 2)
Quarter: 2017Q4

REPORT INFORMATION
  Report Type: Spontaneous
  Country: US (occurrence: US)
  Receive Date: 20171115
  Receipt Date: 20171123
  Transmission Date: 20180321
  Serious: No
  Sender: FDA-Public Use
  Company Number: US-AMGEN-USASP2017171181

PATIENT
  Age: 53 Year
  Sex: Female

DRUGS (1)
  1. ENBREL [Suspect]
     Active Substance: ETANERCEPT
     Indication: RHEUMATOID ARTHRITIS
     Dosage: UNK UNK, QWK
     Route: 065
     Dates: start: 20171028

REACTIONS (7)
  - Injection site warmth [Unknown]
  - Headache [Unknown]
  - Laceration [Unknown]
  - Localised infection [Unknown]
  - Pain in extremity [Unknown]
  - Injection site erythema [Unknown]
  - Injection site rash [Not Recovered/Not Resolved]

NARRATIVE: CASE EVENT DATE: 2017
